FAERS Safety Report 4582375-6 (Version None)
Quarter: 2005Q1

REPORT INFORMATION
  Report Type: 
  Country: None (occurrence: None)
  Receive Date: 20050119
  Receipt Date: 20031216
  Transmission Date: 20050727
  Serious: Yes (Other)
  Sender: FDA-Public Use
  Company Number: US-JNJFOC-20031203320

PATIENT
  Age: 54 Year
  Sex: Female
  Weight: 57 kg

DRUGS (1)
  1. DOXIL [Suspect]
     Indication: BREAST CANCER METASTATIC
     Dosage: 46 MG, INTRAVENOUS
     Route: 042
     Dates: start: 20031208, end: 20031208

REACTIONS (6)
  - CHEST PAIN [None]
  - DYSPNOEA [None]
  - FLANK PAIN [None]
  - HYPERHIDROSIS [None]
  - INFUSION RELATED REACTION [None]
  - OXYGEN SATURATION DECREASED [None]
